FAERS Safety Report 21663307 (Version 1)
Quarter: 2022Q4

REPORT INFORMATION
  Report Type: Spontaneous
  Country: US (occurrence: None)
  Receive Date: 20221129
  Receipt Date: 20221129
  Transmission Date: 20230113
  Serious: No
  Sender: FDA-Public Use
  Company Number: None

PATIENT
  Age: 47 Year
  Sex: Female
  Weight: 108 kg

DRUGS (2)
  1. HALDOL DECANOATE [Suspect]
     Active Substance: HALOPERIDOL DECANOATE
     Indication: Psychotic disorder
     Dates: start: 20121129
  2. VITAMIN D [Concomitant]
     Active Substance: VITAMIN D NOS

REACTIONS (19)
  - Trichorrhexis [None]
  - Onychoclasis [None]
  - Skin fragility [None]
  - Fluid retention [None]
  - Swelling [None]
  - Weight decreased [None]
  - Food allergy [None]
  - Renal impairment [None]
  - Pericardial effusion [None]
  - Pain [None]
  - Skin discolouration [None]
  - Euphoric mood [None]
  - Hypoglycaemia [None]
  - Logorrhoea [None]
  - Hallucination, auditory [None]
  - Anaemia [None]
  - Blood triglycerides increased [None]
  - Blood cholesterol increased [None]
  - Eczema [None]
